FAERS Safety Report 5006454-4 (Version None)
Quarter: 2006Q2

REPORT INFORMATION
  Report Type: 
  Country: None (occurrence: None)
  Receive Date: 20060519
  Receipt Date: 20060508
  Transmission Date: 20061013
  Serious: Yes (Death)
  Sender: FDA-Public Use
  Company Number: JP-BRISTOL-MYERS SQUIBB COMPANY-13374194

PATIENT
  Age: 75 Year
  Sex: Female

DRUGS (3)
  1. MAXIPIME [Suspect]
     Indication: FEBRILE NEUTROPENIA
     Dates: start: 20060215, end: 20060221
  2. ARBEKACIN SULPHATE [Concomitant]
     Dates: start: 20060215, end: 20060221
  3. MICAFUNGIN SODIUM [Concomitant]
     Dates: start: 20060126, end: 20060221

REACTIONS (1)
  - DEATH [None]
